FAERS Safety Report 21731465 (Version 2)
Quarter: 2022Q4

REPORT INFORMATION
  Report Type: Report from Study
  Country: IT (occurrence: IT)
  Receive Date: 20221215
  Receipt Date: 20221231
  Transmission Date: 20230113
  Serious: Yes (Hospitalization)
  Sender: FDA-Public Use
  Company Number: None

PATIENT
  Age: 71 Year
  Sex: Male

DRUGS (4)
  1. CISPLATIN [Suspect]
     Active Substance: CISPLATIN
     Indication: Oesophageal carcinoma
     Dosage: FREQUENCY OF ADMINISTRATION: CYCLIC, ROUTE OF ADMINISTRATION: INTRAVENOUS, THERAPY END DATE : NASK
     Route: 042
     Dates: start: 20221103
  2. FLUOROURACIL [Concomitant]
     Active Substance: FLUOROURACIL
     Indication: Oesophageal carcinoma
     Dosage: ROUTE OF ADMINISTRATION: INTRAVENOUS
     Route: 042
     Dates: start: 20221103
  3. FOLINA [Concomitant]
     Indication: Product used for unknown indication
     Dosage: DOSAGE: 5, UNIT OF MEASURE: MILLIGRAMS, ROUTE OF ADMINISTRATION: ORAL,
     Route: 048
  4. DELAPRIL HYDROCHLORIDE\INDAPAMIDE [Concomitant]
     Active Substance: DELAPRIL HYDROCHLORIDE\INDAPAMIDE
     Indication: Product used for unknown indication
     Dosage: ROUTE OF ADMINISTRATION: ORAL
     Route: 048

REACTIONS (3)
  - Dehydration [Recovered/Resolved]
  - Hypotension [Recovered/Resolved]
  - Nausea [Recovered/Resolved]

NARRATIVE: CASE EVENT DATE: 20221114
